FAERS Safety Report 24134336 (Version 1)
Quarter: 2024Q3

REPORT INFORMATION
  Report Type: Spontaneous
  Country: US (occurrence: US)
  Receive Date: 20240725
  Receipt Date: 20240725
  Transmission Date: 20241016
  Serious: Yes (Disabling, Other)
  Sender: CHATTEM
  Company Number: US-OPELLA-2024OHG024817

PATIENT
  Sex: Female

DRUGS (1)
  1. TALC [Suspect]
     Active Substance: TALC
     Indication: Product used for unknown indication

REACTIONS (7)
  - Mesothelioma malignant [Unknown]
  - Disability [Unknown]
  - Exposure to chemical pollution [Unknown]
  - Injury [Unknown]
  - Injury [Unknown]
  - Deformity [Unknown]
  - Anxiety [Unknown]

NARRATIVE: CASE EVENT DATE: 19660101
